FAERS Safety Report 8990207 (Version 1)
Quarter: 2012Q4

REPORT INFORMATION
  Report Type: 
  Country: US (occurrence: US)
  Receive Date: 20121228
  Receipt Date: 20121228
  Transmission Date: 20130627
  Serious: No
  Sender: FDA-Public Use
  Company Number: US-PFIZER INC-2012330288

PATIENT
  Age: 23 Year
  Sex: Female
  Weight: 68.03 kg

DRUGS (1)
  1. ADVIL [Suspect]
     Indication: PAIN MENSTRUAL
     Dosage: 800 mg, 3x/day
     Route: 048
     Dates: end: 20121225

REACTIONS (2)
  - Overdose [Unknown]
  - Abdominal pain upper [Not Recovered/Not Resolved]
